FAERS Safety Report 9421271 (Version 1)
Quarter: 2013Q3

REPORT INFORMATION
  Report Type: Spontaneous
  Country: US (occurrence: None)
  Receive Date: 20130719
  Receipt Date: 20130719
  Transmission Date: 20140515
  Serious: Yes (Death)
  Sender: FDA-Public Use
  Company Number: 2013PROUSA02919

PATIENT
  Age: 75 Year
  Sex: Male
  Weight: 86.2 kg

DRUGS (12)
  1. PROVENGE [Suspect]
     Indication: PROSTATE CANCER METASTATIC
     Route: 042
     Dates: start: 20130404, end: 20130404
  2. VALIUM (DIAZEPAM) [Concomitant]
  3. DENOSUMAB (DENOSUMAB) [Concomitant]
  4. NAMENDA (MEMANTINE HYDROCHLORIDE) [Concomitant]
  5. ARICEPT (DONEPEZIL HYDROCHLORIDE) [Concomitant]
  6. DESYREL (TRAZODONE HYDROCHLORIDE) [Concomitant]
  7. OMEPRAZOLE (OMEPRAZOLE) [Concomitant]
  8. CYMBALTA (DULOXETINE HYDROCHLORIDE) [Concomitant]
  9. TEMAZEPAM (TEMAZEPAM) [Concomitant]
  10. VOLTAREN (DICLOFENAC SODIUM) [Concomitant]
  11. VICODIN (HYDROCODONE BITARTRATE, PARACETAMOL) [Concomitant]
  12. ASPIRIN (ACETYLSALICYLIC ACID) [Concomitant]

REACTIONS (1)
  - Cardio-respiratory arrest [None]
